FAERS Safety Report 7076475-9 (Version None)
Quarter: 2010Q4

REPORT INFORMATION
  Report Type: 
  Country: None (occurrence: None)
  Receive Date: 20101029
  Receipt Date: 20101029
  Transmission Date: 20110411
  Serious: Yes (Other)
  Sender: FDA-Public Use
  Company Number: None

PATIENT
  Sex: Female
  Weight: 96.1626 kg

DRUGS (1)
  1. CLINDAMYCIN [Suspect]
     Indication: POSTOPERATIVE CARE
     Dosage: 300 MG 3 TIMES DAILY QUANTITY 21
     Dates: start: 20101024

REACTIONS (2)
  - HYPERSENSITIVITY [None]
  - VASCULITIS [None]
